FAERS Safety Report 23853638 (Version 1)
Quarter: 2024Q2

REPORT INFORMATION
  Report Type: Other
  Country: ZA (occurrence: None)
  Receive Date: 20240514
  Receipt Date: 20240514
  Transmission Date: 20240715
  Serious: Yes (Other)
  Sender: FDA-Public Use
  Company Number: ZA-ROCHE-3558639

PATIENT
  Sex: Female

DRUGS (1)
  1. OCREVUS [Suspect]
     Active Substance: OCRELIZUMAB
     Indication: Relapsing-remitting multiple sclerosis
     Dosage: THERE AFTER 600MG EVERY 6 MONTHS
     Route: 041
     Dates: start: 20221101

REACTIONS (6)
  - Hemiparesis [Unknown]
  - Demyelination [Unknown]
  - Paranasal sinus mucosal hypertrophy [Unknown]
  - Balance disorder [Unknown]
  - Neuralgia [Unknown]
  - Bladder disorder [Unknown]
